FAERS Safety Report 6252946-X (Version None)
Quarter: 2009Q3

REPORT INFORMATION
  Report Type: 
  Country: None (occurrence: None)
  Receive Date: 20090701
  Receipt Date: 20090624
  Transmission Date: 20100115
  Serious: Yes (Death)
  Sender: FDA-Public Use
  Company Number: A0794802A

PATIENT
  Sex: Male

DRUGS (2)
  1. SERETIDE [Suspect]
     Dosage: 2PUFF TWICE PER DAY
     Route: 055
     Dates: start: 20090325, end: 20090614
  2. UNSPECIFIED MEDICATIONS [Concomitant]

REACTIONS (1)
  - RESPIRATORY FAILURE [None]
